FAERS Safety Report 4723524-6 (Version None)
Quarter: 2005Q3

REPORT INFORMATION
  Report Type: 
  Country: None (occurrence: None)
  Receive Date: 20050721
  Receipt Date: 20050721
  Transmission Date: 20060218
  Serious: Yes (Death)
  Sender: FDA-Public Use
  Company Number: None

PATIENT
  Age: 34 Year
  Sex: Female
  Weight: 68.0396 kg

DRUGS (12)
  1. FENTANYL [Suspect]
     Indication: HEADACHE
     Dosage: 2 1/2 DAYS PATCH TRANSDERMAL
     Route: 062
  2. FENTANYL [Suspect]
     Indication: MENIERE'S DISEASE
     Dosage: 2 1/2 DAYS PATCH TRANSDERMAL
     Route: 062
  3. METHADONE 10 MG GREAT FALLS CLINIC [Suspect]
     Dosage: 2 TABS 3X PER DAY ORAL
     Route: 048
  4. PERCOCET [Concomitant]
  5. VALIUM [Concomitant]
  6. LEVAQUIN [Concomitant]
  7. LEXAPRO [Concomitant]
  8. DOLOPHINE [Concomitant]
  9. PHENERGAN [Concomitant]
  10. CLONEIPIN [Concomitant]
  11. AVELOX [Concomitant]
  12. CLINDAMYCIN [Concomitant]

REACTIONS (14)
  - COLD SWEAT [None]
  - DIARRHOEA [None]
  - DRUG WITHDRAWAL SYNDROME [None]
  - ENZYME ABNORMALITY [None]
  - FATIGUE [None]
  - HEADACHE [None]
  - MENIERE'S DISEASE [None]
  - NAUSEA [None]
  - PATHOGEN RESISTANCE [None]
  - PNEUMONIA ASPIRATION [None]
  - PRESCRIBED OVERDOSE [None]
  - PSYCHOMOTOR HYPERACTIVITY [None]
  - STAPHYLOCOCCAL INFECTION [None]
  - VOMITING [None]
